FAERS Safety Report 17257764 (Version 1)
Quarter: 2020Q1

REPORT INFORMATION
  Report Type: Spontaneous
  Country: CN (occurrence: CN)
  Receive Date: 20200110
  Receipt Date: 20200110
  Transmission Date: 20200409
  Serious: Yes (Other)
  Sender: FDA-Public Use
  Company Number: CN-009507513-2001CHN001360

PATIENT
  Age: 2 Year
  Sex: Male
  Weight: 16.3 kg

DRUGS (2)
  1. VFEND [Suspect]
     Active Substance: VORICONAZOLE
     Indication: ANTI-INFECTIVE THERAPY
     Dosage: 100 MILLIGRAM, BID
     Route: 048
     Dates: start: 20191029, end: 20191108
  2. TIENAM [Suspect]
     Active Substance: CILASTATIN SODIUM\IMIPENEM
     Indication: ANTI-INFECTIVE THERAPY
     Dosage: POWDER; 0.49 G, BID
     Route: 041
     Dates: start: 20191107, end: 20191122

REACTIONS (1)
  - Psychotic symptom [Recovering/Resolving]

NARRATIVE: CASE EVENT DATE: 20191108
